FAERS Safety Report 15357860 (Version 2)
Quarter: 2018Q4

REPORT INFORMATION
  Report Type: Spontaneous
  Country: BR (occurrence: BR)
  Receive Date: 20180906
  Receipt Date: 20181009
  Transmission Date: 20190204
  Serious: Yes (Other)
  Sender: FDA-Public Use
  Company Number: PHHY2018BR084195

PATIENT
  Sex: Male
  Weight: 80 kg

DRUGS (1)
  1. AZITHROMYCIN SANDOZ [Suspect]
     Active Substance: AZITHROMYCIN ANHYDROUS
     Indication: ARTHRITIS GONOCOCCAL
     Dosage: 1 DF, QD
     Route: 048
     Dates: start: 20180801, end: 20180817

REACTIONS (6)
  - Condition aggravated [Not Recovered/Not Resolved]
  - Arthritis gonococcal [Not Recovered/Not Resolved]
  - Product use in unapproved indication [Unknown]
  - Joint swelling [Not Recovered/Not Resolved]
  - Product prescribing error [Unknown]
  - Drug ineffective [Unknown]
